FAERS Safety Report 24940408 (Version 1)
Quarter: 2025Q1

REPORT INFORMATION
  Report Type: Spontaneous
  Country: CA (occurrence: CA)
  Receive Date: 20250207
  Receipt Date: 20250207
  Transmission Date: 20250409
  Serious: Yes (Other)
  Sender: TEVA
  Company Number: CA-TEVA-VS-3294978

PATIENT

DRUGS (1)
  1. CLINDAMYCIN [Suspect]
     Active Substance: CLINDAMYCIN
     Indication: Tooth injury
     Route: 065

REACTIONS (9)
  - Impaired healing [Unknown]
  - Pain [Unknown]
  - Haemorrhage [Unknown]
  - Hypophagia [Unknown]
  - Gait disturbance [Unknown]
  - Haemorrhoids [Unknown]
  - Anal fissure [Unknown]
  - Impaired quality of life [Unknown]
  - Abnormal faeces [Unknown]
